FAERS Safety Report 6447540-1 (Version None)
Quarter: 2009Q4

REPORT INFORMATION
  Report Type: 
  Country: None (occurrence: None)
  Receive Date: 20091119
  Receipt Date: 20090506
  Transmission Date: 20100525
  Serious: Yes (Other)
  Sender: FDA-Public Use
  Company Number: US-AMGEN-COG346085

PATIENT
  Sex: Female

DRUGS (2)
  1. ENBREL [Suspect]
     Indication: RHEUMATOID ARTHRITIS
     Route: 058
     Dates: start: 20090116
  2. METHOTREXATE [Concomitant]
     Route: 058
     Dates: start: 20090129

REACTIONS (8)
  - BACK PAIN [None]
  - DEPRESSION [None]
  - DIZZINESS [None]
  - HALO VISION [None]
  - INCREASED TENDENCY TO BRUISE [None]
  - PALLOR [None]
  - RENAL PAIN [None]
  - VISION BLURRED [None]
